FAERS Safety Report 10088001 (Version 2)
Quarter: 2014Q2

REPORT INFORMATION
  Report Type: Report from Study
  Country: BR (occurrence: BR)
  Receive Date: 20140420
  Receipt Date: 20140519
  Transmission Date: 20141212
  Serious: Yes (Other)
  Sender: FDA-Public Use
  Company Number: PHHY2014BR044821

PATIENT
  Age: 13 Year
  Sex: Female
  Weight: 50 kg

DRUGS (9)
  1. EXJADE [Suspect]
     Indication: IRON OVERLOAD
     Dosage: 2 DF, DAILY
  2. RITALINA [Suspect]
     Indication: ATTENTION DEFICIT/HYPERACTIVITY DISORDER
     Dosage: UNK UKN, UNK
  3. CLONAZEPAM [Suspect]
     Indication: CONVULSION
     Dosage: 2 DF, DAILY
  4. OXCARBAZEPINE [Suspect]
     Dosage: UNK UKN, UNK
  5. TOPIRAMATO [Suspect]
     Indication: CONVULSION
     Dosage: 4 DF, A DAY
  6. TOPIRAMATE [Suspect]
     Dosage: UNK UKN, UNK
  7. CLOBAZAM [Suspect]
     Dosage: UNK UKN, UNK
  8. FOLIC ACID [Concomitant]
     Indication: SICKLE CELL ANAEMIA
     Dosage: 1 DF, ALTENATE DAY
     Dates: start: 2005
  9. PYRIDOXINE [Concomitant]
     Dosage: 2 DF, DAILY

REACTIONS (3)
  - Nephrolithiasis [Recovered/Resolved]
  - Malaise [Unknown]
  - Agitation [Unknown]
